FAERS Safety Report 14604961 (Version 1)
Quarter: 2018Q1

REPORT INFORMATION
  Report Type: Report from Study
  Country: US (occurrence: US)
  Receive Date: 20180306
  Receipt Date: 20180306
  Transmission Date: 20180509
  Serious: Yes (Hospitalization, Other)
  Sender: FDA-Public Use
  Company Number: US-SHIRE-US201808186

PATIENT
  Age: 7 Year
  Sex: Male
  Weight: 21.6 kg

DRUGS (14)
  1. SENNA ALEXANDRINA [Concomitant]
     Active Substance: SENNA LEAF
     Indication: PRODUCT USED FOR UNKNOWN INDICATION
  2. METHOTREXATE. [Suspect]
     Active Substance: METHOTREXATE
     Indication: ACUTE LYMPHOCYTIC LEUKAEMIA
     Dosage: 12 MG, UNK
     Route: 037
     Dates: start: 20171026, end: 20171026
  3. VITAMINS NOS [Concomitant]
     Active Substance: VITAMINS
     Indication: PRODUCT USED FOR UNKNOWN INDICATION
  4. PEGASPARGASE [Suspect]
     Active Substance: PEGASPARGASE
     Indication: ACUTE LYMPHOCYTIC LEUKAEMIA
     Dosage: 10 MG, 2X/DAY:BID
     Route: 048
     Dates: start: 20171106
  5. VINCRISTINE [Suspect]
     Active Substance: VINCRISTINE
     Indication: ACUTE LYMPHOCYTIC LEUKAEMIA
     Dosage: 1.2 MG, UNK
     Route: 042
     Dates: start: 20171106, end: 20171106
  6. METHOTREXATE. [Suspect]
     Active Substance: METHOTREXATE
     Dosage: 245 MG, UNK
     Route: 042
     Dates: start: 20171106, end: 20171106
  7. ZOFRAN [Concomitant]
     Active Substance: ONDANSETRON HYDROCHLORIDE
     Indication: PRODUCT USED FOR UNKNOWN INDICATION
  8. MIRALAX [Concomitant]
     Active Substance: POLYETHYLENE GLYCOL 3350
     Indication: PRODUCT USED FOR UNKNOWN INDICATION
  9. ROXICODONE [Concomitant]
     Active Substance: OXYCODONE HYDROCHLORIDE
     Indication: PRODUCT USED FOR UNKNOWN INDICATION
  10. CANNABIS SATIVA OIL [Concomitant]
     Active Substance: CANNABIS SATIVA SUBSP. INDICA TOP
     Indication: PRODUCT USED FOR UNKNOWN INDICATION
  11. EMLA [Concomitant]
     Active Substance: LIDOCAINE\PRILOCAINE
     Indication: PRODUCT USED FOR UNKNOWN INDICATION
  12. VITAMIN C [Concomitant]
     Active Substance: ASCORBIC ACID
     Indication: PRODUCT USED FOR UNKNOWN INDICATION
  13. PEGASPARGASE [Suspect]
     Active Substance: PEGASPARGASE
     Dosage: 2050 UNK, UNK
     Route: 042
     Dates: start: 20171018, end: 20171018
  14. BACTRIM [Concomitant]
     Active Substance: SULFAMETHOXAZOLE\TRIMETHOPRIM
     Indication: PRODUCT USED FOR UNKNOWN INDICATION

REACTIONS (1)
  - Febrile neutropenia [Recovered/Resolved]

NARRATIVE: CASE EVENT DATE: 20171115
